FAERS Safety Report 11200378 (Version 1)
Quarter: 2015Q2

REPORT INFORMATION
  Report Type: Spontaneous
  Country: CY (occurrence: CY)
  Receive Date: 20150618
  Receipt Date: 20150618
  Transmission Date: 20150821
  Serious: Yes (Other)
  Sender: FDA-Public Use
  Company Number: CY-INCYTE CORPORATION-2015IN002671

PATIENT
  Age: 55 Year
  Sex: Female

DRUGS (2)
  1. JAKAFI [Suspect]
     Active Substance: RUXOLITINIB
     Indication: MYELOFIBROSIS
     Dosage: 5 MG, BID FOR 8 DAYS
     Route: 048
     Dates: start: 20150508, end: 20150516
  2. JAKAFI [Suspect]
     Active Substance: RUXOLITINIB
     Dosage: 15 MG, UNK (10 MG IN THE MORNING AND 5 MG IN THE EVENING) FOR 2 DAYS
     Route: 048
     Dates: start: 20150516, end: 20150518

REACTIONS (1)
  - Acute myeloid leukaemia [Not Recovered/Not Resolved]

NARRATIVE: CASE EVENT DATE: 20150518
